FAERS Safety Report 11870945 (Version 5)
Quarter: 2016Q2

REPORT INFORMATION
  Report Type: Spontaneous
  Country: US (occurrence: US)
  Receive Date: 20151228
  Receipt Date: 20160415
  Transmission Date: 20160815
  Serious: Yes (Hospitalization, Other)
  Sender: FDA-Public Use
  Company Number: US-BAYER-2015-490399

PATIENT
  Age: 22 Year
  Sex: Female
  Weight: 81.63 kg

DRUGS (13)
  1. CONCERTA [Concomitant]
     Active Substance: METHYLPHENIDATE HYDROCHLORIDE
  2. RITALIN [Concomitant]
     Active Substance: METHYLPHENIDATE HYDROCHLORIDE
  3. MEFOXIN [Concomitant]
     Active Substance: CEFOXITIN SODIUM
  4. ONDANSETRON [Concomitant]
     Active Substance: ONDANSETRON
  5. METHYLPHENIDATE. [Concomitant]
     Active Substance: METHYLPHENIDATE
  6. MIRENA [Suspect]
     Active Substance: LEVONORGESTREL
     Indication: CONTRACEPTION
     Dosage: 20 MCG/24HR, CONT
     Route: 015
     Dates: start: 20060803, end: 20141214
  7. TYLENOL [CHLORPHENAM MAL,DEXTROMET HBR,PARACET,PSEUDOEPH HCL] [Concomitant]
     Active Substance: ACETAMINOPHEN\CHLORPHENIRAMINE MALEATE\DEXTROMETHORPHAN HYDROBROMIDE\PSEUDOEPHEDRINE HYDROCHLORIDE
  8. IBUPROFEN. [Concomitant]
     Active Substance: IBUPROFEN
  9. PERCOCET [Concomitant]
     Active Substance: ACETAMINOPHEN\OXYCODONE HYDROCHLORIDE
  10. MIDAZOLAM [Concomitant]
     Active Substance: MIDAZOLAM\MIDAZOLAM HYDROCHLORIDE
  11. FENTANYL. [Concomitant]
     Active Substance: FENTANYL
  12. DILAUDID [Concomitant]
     Active Substance: HYDROMORPHONE HYDROCHLORIDE
  13. MORPHINE [Concomitant]
     Active Substance: MORPHINE

REACTIONS (15)
  - Uterine perforation [None]
  - Abortion induced [None]
  - Abdominal mass [None]
  - Cyst [None]
  - Pain [None]
  - Menorrhagia [None]
  - Drug ineffective [None]
  - Device use error [None]
  - Dysmenorrhoea [None]
  - Device dislocation [None]
  - Malaise [None]
  - Procedural pain [None]
  - Genital injury [None]
  - Scar [None]
  - Pregnancy with contraceptive device [None]

NARRATIVE: CASE EVENT DATE: 200612
